FAERS Safety Report 22858410 (Version 2)
Quarter: 2023Q4

REPORT INFORMATION
  Report Type: Report from Study
  Country: TR (occurrence: None)
  Receive Date: 20230824
  Receipt Date: 20231011
  Transmission Date: 20240110
  Serious: Yes (Other)
  Sender: FDA-Public Use
  Company Number: TR-ROCHE-3387669

PATIENT
  Age: 73 Year
  Sex: Male
  Weight: 73.9 kg

DRUGS (5)
  1. RITUXIMAB [Suspect]
     Active Substance: RITUXIMAB
     Indication: B-cell lymphoma
     Dosage: ON 18/MAY/2023, HE RECEIVED HIS MOST RECENT DOSE OF RITUXIMAB PRIOR TO AE.?ON 05/JUN/2023, HE RECEIV
     Route: 041
     Dates: start: 20230322
  2. OXALIPLATIN [Suspect]
     Active Substance: OXALIPLATIN
     Indication: B-cell lymphoma
     Dosage: ON 18/MAY/2023, HE RECEIVED HIS MOST RECENT DOSE (189 MG) OF OXALIPLATIN PRIOR TO AE.?ON 05/JUN/2023
     Route: 042
  3. GEMCITABINE [Suspect]
     Active Substance: GEMCITABINE
     Indication: B-cell lymphoma
     Dosage: ON 18/MAY/2023, HE RECEIVED HIS MOST RECENT DOSE (1890 MG) OF GEMCITABINE PRIOR TO AE.?ON 05/JUN/202
     Route: 042
     Dates: start: 20230322
  4. FILGRASTIM [Concomitant]
     Active Substance: FILGRASTIM
     Indication: Neutrophil count decreased
     Route: 058
     Dates: start: 20230519, end: 20230521
  5. FILGRASTIM [Concomitant]
     Active Substance: FILGRASTIM
     Route: 058
     Dates: start: 20230606, end: 20230608

REACTIONS (1)
  - Platelet count decreased [Recovered/Resolved]

NARRATIVE: CASE EVENT DATE: 20230530
